FAERS Safety Report 7740758-7 (Version None)
Quarter: 2011Q3

REPORT INFORMATION
  Report Type: 
  Country: None (occurrence: None)
  Receive Date: 20110909
  Receipt Date: 20110906
  Transmission Date: 20111222
  Serious: Yes (Life-Threatening, Hospitalization)
  Sender: FDA-Public Use
  Company Number: US-B.I. PHARMACEUTICALS,INC./RIDGEFIELD-2011-BP-19976BP

PATIENT
  Age: 54 Year
  Sex: Female
  Weight: 106.14 kg

DRUGS (9)
  1. ZOCOR [Concomitant]
  2. LOSARTAN POTASSIUM [Concomitant]
  3. MICARDIS HCT [Suspect]
     Indication: HYPERTENSION
     Dates: start: 20060601, end: 20091001
  4. LASIX [Concomitant]
  5. PRAVACHOL [Concomitant]
     Indication: BLOOD CHOLESTEROL ABNORMAL
  6. PLAVIX [Concomitant]
  7. ASPIRIN [Concomitant]
  8. METOPROLOL TARTE [Concomitant]
  9. K-TAB [Concomitant]

REACTIONS (7)
  - CHEST PAIN [None]
  - ARTERIAL OCCLUSIVE DISEASE [None]
  - DRUG INEFFECTIVE [None]
  - RESPIRATORY RATE DECREASED [None]
  - CORONARY ARTERY OCCLUSION [None]
  - MYOCARDIAL INFARCTION [None]
  - DYSPNOEA [None]
